FAERS Safety Report 20127235 (Version 2)
Quarter: 2022Q2

REPORT INFORMATION
  Report Type: Spontaneous
  Country: CA (occurrence: CA)
  Receive Date: 20211129
  Receipt Date: 20220612
  Transmission Date: 20220721
  Serious: Yes (Other)
  Sender: FDA-Public Use
  Company Number: CA-SA-SAC20211125000350

PATIENT
  Age: 50 Year
  Sex: Female

DRUGS (7)
  1. LEFLUNOMIDE [Suspect]
     Active Substance: LEFLUNOMIDE
     Indication: Product used for unknown indication
     Dosage: UNK
  2. METHOTREXATE [Suspect]
     Active Substance: METHOTREXATE
     Indication: Psoriatic arthropathy
     Dosage: 20 MG, QW
     Route: 058
     Dates: start: 201812, end: 201903
  3. PANTOPRAZOLE SODIUM [Concomitant]
     Active Substance: PANTOPRAZOLE SODIUM
     Dosage: UNK
  4. ZOPICLONE [Concomitant]
     Active Substance: ZOPICLONE
  5. ZOPICLONE [Concomitant]
     Active Substance: ZOPICLONE
  6. CEFIXIME [Concomitant]
     Active Substance: CEFIXIME
  7. CEFIXIME [Concomitant]
     Active Substance: CEFIXIME

REACTIONS (8)
  - Nail discolouration [Unknown]
  - Nail disorder [Unknown]
  - Suicidal ideation [Unknown]
  - Onychoclasis [Unknown]
  - Madarosis [Unknown]
  - Alopecia [Unknown]
  - Product use issue [Unknown]
  - Off label use [Unknown]
